FAERS Safety Report 16740684 (Version 1)
Quarter: 2019Q4

REPORT INFORMATION
  Report Type: Spontaneous
  Country: US (occurrence: US)
  Receive Date: 20190825
  Receipt Date: 20190825
  Transmission Date: 20200122
  Serious: Yes (Hospitalization)
  Sender: FDA-Public Use
  Company Number: None

PATIENT
  Age: 41 Year
  Sex: Female
  Weight: 69.75 kg

DRUGS (8)
  1. DONA [Concomitant]
  2. IBUPROFEN. [Concomitant]
     Active Substance: IBUPROFEN
  3. TYLENOL [Concomitant]
     Active Substance: ACETAMINOPHEN
  4. PRILOSEC [Concomitant]
     Active Substance: OMEPRAZOLE MAGNESIUM
  5. ALVESCO [Suspect]
     Active Substance: CICLESONIDE
     Indication: REACTIVE AIRWAYS DYSFUNCTION SYNDROME
     Dosage: ?          QUANTITY:1 PUFF(S);?
     Route: 055
     Dates: start: 20190803, end: 20190807
  6. ALVESCO [Suspect]
     Active Substance: CICLESONIDE
     Indication: ASTHMA
     Dosage: ?          QUANTITY:1 PUFF(S);?
     Route: 055
     Dates: start: 20190803, end: 20190807
  7. ACYCLOVIR. [Concomitant]
     Active Substance: ACYCLOVIR
  8. MELATONIN [Concomitant]
     Active Substance: MELATONIN

REACTIONS (5)
  - Therapy cessation [None]
  - Gait disturbance [None]
  - Dyspnoea [None]
  - Dizziness [None]
  - Chest discomfort [None]

NARRATIVE: CASE EVENT DATE: 20190807
